FAERS Safety Report 4293468-5 (Version None)
Quarter: 2004Q1

REPORT INFORMATION
  Report Type: 
  Country: None (occurrence: None)
  Receive Date: 20040126
  Receipt Date: 20030826
  Transmission Date: 20041129
  Serious: No
  Sender: FDA-Public Use
  Company Number: USA030844623

PATIENT
  Sex: Female

DRUGS (1)
  1. FORTEO [Suspect]
     Indication: OSTEOPOROSIS

REACTIONS (5)
  - ABDOMINAL SYMPTOM [None]
  - FEELING ABNORMAL [None]
  - NAUSEA [None]
  - SINUS HEADACHE [None]
  - TOOTHACHE [None]
